FAERS Safety Report 22018960 (Version 2)
Quarter: 2023Q1

REPORT INFORMATION
  Report Type: Other
  Country: US (occurrence: None)
  Receive Date: 20230222
  Receipt Date: 20230228
  Transmission Date: 20230417
  Serious: Yes (Other)
  Sender: FDA-Public Use
  Company Number: US-ROCHE-2862503

PATIENT
  Sex: Female

DRUGS (10)
  1. RITUXIMAB [Suspect]
     Active Substance: RITUXIMAB
     Indication: Product used for unknown indication
     Dosage: DOCUMENTED IN MEDICAL REVIEW (DATED 11/22/2021)
     Route: 065
  2. CELLCEPT [Suspect]
     Active Substance: MYCOPHENOLATE MOFETIL
     Indication: Microscopic polyangiitis
     Dosage: 3 TABLETS
     Route: 048
  3. CELLCEPT [Suspect]
     Active Substance: MYCOPHENOLATE MOFETIL
     Indication: C-reactive protein increased
  4. CELLCEPT [Suspect]
     Active Substance: MYCOPHENOLATE MOFETIL
     Indication: Red blood cell sedimentation rate increased
  5. CELLCEPT [Suspect]
     Active Substance: MYCOPHENOLATE MOFETIL
     Indication: Fibromyalgia
  6. CELLCEPT [Suspect]
     Active Substance: MYCOPHENOLATE MOFETIL
     Indication: Hypertrophic osteoarthropathy
  7. CELLCEPT [Suspect]
     Active Substance: MYCOPHENOLATE MOFETIL
     Indication: Immunology test abnormal
  8. VALTREX [Concomitant]
     Active Substance: VALACYCLOVIR HYDROCHLORIDE
     Route: 048
  9. LIPITOR [Concomitant]
     Active Substance: ATORVASTATIN CALCIUM
     Route: 048
     Dates: start: 20210705
  10. VOLTAREN [Concomitant]
     Active Substance: DICLOFENAC SODIUM
     Dates: start: 20200506

REACTIONS (19)
  - Autoimmune disorder [Unknown]
  - Arthritis [Unknown]
  - Musculoskeletal stiffness [Unknown]
  - Pain [Unknown]
  - Joint swelling [Unknown]
  - Grip strength decreased [Unknown]
  - Myalgia [Unknown]
  - Osteoarthritis [Unknown]
  - Synovial cyst [Unknown]
  - Dry eye [Unknown]
  - Back pain [Unknown]
  - Overweight [Unknown]
  - Arthralgia [Unknown]
  - Fatigue [Unknown]
  - Liver function test increased [Unknown]
  - Antineutrophil cytoplasmic antibody positive [Unknown]
  - Rash [Unknown]
  - Memory impairment [Unknown]
  - Off label use [Unknown]
